FAERS Safety Report 8771784 (Version 2)
Quarter: 2015Q3

REPORT INFORMATION
  Report Type: Report from Study
  Country: DE (occurrence: DE)
  Receive Date: 20120905
  Receipt Date: 20150930
  Transmission Date: 20151125
  Serious: Yes (Other)
  Sender: FDA-Public Use
  Company Number: DE-ROCHE-611106

PATIENT

DRUGS (3)
  1. RIBAVIRIN. [Suspect]
     Active Substance: RIBAVIRIN
     Indication: HEPATITIS C
     Dosage: TDD: 800 MG TO 1200 MG
     Route: 048
  2. PEG-INTERFERON ALFA 2A [Suspect]
     Active Substance: PEGINTERFERON ALFA-2A
     Indication: HEPATITIS C
     Route: 058
  3. ESCITALOPRAM [Suspect]
     Active Substance: ESCITALOPRAM OXALATE
     Indication: ANTIDEPRESSANT THERAPY
     Dosage: STARTED 2 WEEKS PRIOR TO HEPATITIS C THERAPY
     Route: 065

REACTIONS (9)
  - Major depression [Unknown]
  - Self injurious behaviour [Unknown]
  - Glioblastoma [Unknown]
  - Drug abuse [Unknown]
  - Retinopathy [Unknown]
  - Brain neoplasm [Unknown]
  - Jaundice [Unknown]
  - Renal failure [Unknown]
  - Mania [Unknown]
